FAERS Safety Report 17677247 (Version 1)
Quarter: 2020Q2

REPORT INFORMATION
  Report Type: Spontaneous
  Country: US (occurrence: US)
  Receive Date: 20200415
  Receipt Date: 20200415
  Transmission Date: 20200714
  Serious: No
  Sender: FDA-Public Use
  Company Number: None

PATIENT
  Age: 58 Year
  Sex: Male

DRUGS (1)
  1. TACROLIMUS CAP 0.5MG [Suspect]
     Active Substance: TACROLIMUS
     Route: 048
     Dates: start: 201701

REACTIONS (5)
  - Product supply issue [None]
  - Product substitution [None]
  - Incorrect dose administered [None]
  - Therapy interrupted [None]
  - Self-medication [None]

NARRATIVE: CASE EVENT DATE: 20200408
